FAERS Safety Report 8512227-8 (Version None)
Quarter: 2012Q3

REPORT INFORMATION
  Report Type: 
  Country: None (occurrence: None)
  Receive Date: 20120716
  Receipt Date: 20120709
  Transmission Date: 20120928
  Serious: Yes (Hospitalization)
  Sender: FDA-Public Use
  Company Number: US-ASTRAZENECA-2012SE46961

PATIENT
  Sex: Male

DRUGS (3)
  1. TOPROL-XL [Suspect]
     Dosage: 50 MG WATSON BRAND METOPROLOL
     Route: 048
  2. TOPROL-XL [Suspect]
     Route: 048
  3. TOPROL-XL [Suspect]
     Route: 048

REACTIONS (3)
  - LETHARGY [None]
  - THROMBOSIS [None]
  - DYSPNOEA [None]
